FAERS Safety Report 12160852 (Version 1)
Quarter: 2016Q1

REPORT INFORMATION
  Report Type: Spontaneous
  Country: JP (occurrence: JP)
  Receive Date: 20160308
  Receipt Date: 20160308
  Transmission Date: 20160526
  Serious: Yes (Hospitalization)
  Sender: FDA-Public Use
  Company Number: JP-ELI_LILLY_AND_COMPANY-JP201601008789

PATIENT
  Age: 85 Year
  Sex: Male

DRUGS (14)
  1. TRAZENTA [Concomitant]
     Active Substance: LINAGLIPTIN
  2. THYRADIN [Concomitant]
     Active Substance: LEVOTHYROXINE
  3. NITROPEN [Concomitant]
     Active Substance: NITROGLYCERIN
     Route: 060
  4. URIEF [Concomitant]
     Active Substance: SILODOSIN
     Dosage: UNK UNK, BID
     Route: 048
     Dates: start: 20150731
  5. ZALUTIA [Suspect]
     Active Substance: TADALAFIL
     Indication: PRODUCT USED FOR UNKNOWN INDICATION
     Dosage: 5 MG, QD
     Route: 048
     Dates: start: 20160114
  6. UBRETID [Concomitant]
     Active Substance: DISTIGMINE BROMIDE
     Dosage: UNK UNK, BID
     Route: 048
     Dates: start: 20150731
  7. ROHYPNOL [Concomitant]
     Active Substance: FLUNITRAZEPAM
  8. FRANDOL [Concomitant]
     Active Substance: ISOSORBIDE DINITRATE
     Route: 062
  9. LUPRAC [Concomitant]
     Active Substance: TORSEMIDE
  10. WARFARIN [Concomitant]
     Active Substance: WARFARIN
  11. NU-LOTAN [Concomitant]
     Active Substance: LOSARTAN POTASSIUM
  12. SIGMART [Concomitant]
     Active Substance: NICORANDIL
  13. PLAVIX [Concomitant]
     Active Substance: CLOPIDOGREL BISULFATE
  14. PARIET [Concomitant]
     Active Substance: RABEPRAZOLE SODIUM

REACTIONS (4)
  - Off label use [Unknown]
  - Saliva discolouration [Unknown]
  - Oral mucosal discolouration [Unknown]
  - Cardiac failure [Unknown]

NARRATIVE: CASE EVENT DATE: 20160114
